FAERS Safety Report 7826706-X (Version None)
Quarter: 2011Q4

REPORT INFORMATION
  Report Type: 
  Country: None (occurrence: None)
  Receive Date: 20111020
  Receipt Date: 20110830
  Transmission Date: 20120403
  Serious: No
  Sender: FDA-Public Use
  Company Number: US-MYLANLABS-2011S1018317

PATIENT
  Age: 82 Year
  Sex: Female
  Weight: 48.54 kg

DRUGS (2)
  1. CLONIDINE [Concomitant]
     Indication: BLOOD PRESSURE INCREASED
     Route: 062
  2. CLONIDINE [Suspect]
     Indication: BLOOD PRESSURE INCREASED
     Dosage: CHANGES QW
     Route: 062

REACTIONS (2)
  - DRUG EFFECT DECREASED [None]
  - BLOOD PRESSURE INCREASED [None]
